FAERS Safety Report 19219260 (Version 1)
Quarter: 2021Q2

REPORT INFORMATION
  Report Type: Spontaneous
  Country: US (occurrence: US)
  Receive Date: 20210506
  Receipt Date: 20210506
  Transmission Date: 20210717
  Serious: No
  Sender: FDA-Public Use
  Company Number: US-ROCHE-2632744

PATIENT
  Sex: Female

DRUGS (9)
  1. FUROSEMIDE. [Concomitant]
     Active Substance: FUROSEMIDE
  2. SIMVASTATIN. [Concomitant]
     Active Substance: SIMVASTATIN
  3. POTASSIUM CHLORIDE. [Concomitant]
     Active Substance: POTASSIUM CHLORIDE
  4. METFORMIN [Concomitant]
     Active Substance: METFORMIN HYDROCHLORIDE
  5. LISINOPRIL. [Concomitant]
     Active Substance: LISINOPRIL
  6. METOPROLOL. [Concomitant]
     Active Substance: METOPROLOL
  7. CEPHALEXIN. [Concomitant]
     Active Substance: CEPHALEXIN
  8. ESBRIET [Suspect]
     Active Substance: PIRFENIDONE
     Indication: IDIOPATHIC PULMONARY FIBROSIS
     Route: 048
  9. MUPIROCIN. [Concomitant]
     Active Substance: MUPIROCIN

REACTIONS (1)
  - Diarrhoea [Not Recovered/Not Resolved]
